FAERS Safety Report 21550060 (Version 1)
Quarter: 2022Q4

REPORT INFORMATION
  Report Type: Spontaneous
  Country: FR (occurrence: FR)
  Receive Date: 20221103
  Receipt Date: 20221103
  Transmission Date: 20230113
  Serious: Yes (Other)
  Sender: FDA-Public Use
  Company Number: None

PATIENT
  Age: 12 Year
  Sex: Female

DRUGS (17)
  1. CYCLOPHOSPHAMIDE [Suspect]
     Active Substance: CYCLOPHOSPHAMIDE
     Indication: Optic glioma
     Dosage: 1500 MG/M2, ONCE A MONTH
     Route: 042
     Dates: start: 201004, end: 201012
  2. VINBLASTINE SULFATE [Suspect]
     Active Substance: VINBLASTINE SULFATE
     Indication: Optic glioma
     Dosage: 2.2 MG, ONCE A WEEK
     Route: 042
     Dates: start: 201312, end: 201411
  3. ONCOVIN [Suspect]
     Active Substance: VINCRISTINE SULFATE
     Indication: Optic glioma
     Dosage: 0.3 MG, ONCE A WEEK, SOLUTION INJECTABLE
     Route: 042
     Dates: start: 200906, end: 201012
  4. ONCOVIN [Suspect]
     Active Substance: VINCRISTINE SULFATE
     Dosage: 4 MG, 1 MONTH
     Route: 042
     Dates: start: 201806, end: 201903
  5. NAVELBINE [Suspect]
     Active Substance: VINORELBINE TARTRATE
     Indication: Optic glioma
     Dosage: 200 MG, ONCE A MONTH
     Route: 048
     Dates: start: 201609, end: 201703
  6. COBIMETINIB [Suspect]
     Active Substance: COBIMETINIB
     Indication: Optic glioma
     Dosage: 5.5 ML, ONCE A DAY
     Route: 048
     Dates: start: 201706, end: 201708
  7. IRINOTECAN [Suspect]
     Active Substance: IRINOTECAN
     Indication: Optic glioma
     Dosage: 172 MG, ONCE A MONTH
     Route: 042
     Dates: start: 201304, end: 201312
  8. DECAPEPTYL (ACETATE) [Suspect]
     Active Substance: TRIPTORELIN ACETATE
     Indication: Precocious puberty
     Dosage: 3 MG, ONCE A MONTH
     Route: 058
     Dates: start: 201705, end: 201909
  9. PROCARBAZINE [Suspect]
     Active Substance: PROCARBAZINE
     Indication: Optic glioma
     Dosage: 296 MG, ONCE A MONTH
     Route: 048
     Dates: start: 201806, end: 201903
  10. LOMUSTINE [Suspect]
     Active Substance: LOMUSTINE
     Indication: Optic glioma
     Dosage: 168 MG, ONCE A MONTH
     Route: 048
     Dates: start: 201806, end: 201903
  11. CARBOPLATIN [Suspect]
     Active Substance: CARBOPLATIN
     Indication: Optic glioma
     Dosage: 123 MG, 3 TIMES PER WEEK
     Route: 042
     Dates: start: 200906, end: 201004
  12. KEPPRA [Suspect]
     Active Substance: LEVETIRACETAM
     Indication: Seizure prophylaxis
     Dosage: 1 G, QD
     Route: 048
     Dates: start: 201903, end: 202110
  13. AVASTIN [Suspect]
     Active Substance: BEVACIZUMAB
     Indication: Optic glioma
     Dosage: 300 MG, ONCE A MONTH
     Route: 042
     Dates: start: 201304, end: 201312
  14. THIOGUANINE [Suspect]
     Active Substance: THIOGUANINE
     Indication: Optic glioma
     Dosage: 480 MG, ONCE A MONTH
     Route: 048
     Dates: start: 201806, end: 201903
  15. VINBLASTINE SULFATE [Suspect]
     Active Substance: VINBLASTINE SULFATE
     Indication: Optic glioma
     Dosage: 6 MG/M2, ONCE A WEEK
     Route: 042
     Dates: start: 201204, end: 201304
  16. CISPLATIN [Suspect]
     Active Substance: CISPLATIN
     Indication: Optic glioma
     Dosage: 30 MG/M2, ONCE A MONTH
     Route: 042
     Dates: start: 201004, end: 201012
  17. NILOTINIB [Suspect]
     Active Substance: NILOTINIB
     Indication: Optic glioma
     Dosage: 150 MG, QD
     Route: 048
     Dates: start: 201312, end: 201411

REACTIONS (1)
  - Type 2 diabetes mellitus [Not Recovered/Not Resolved]

NARRATIVE: CASE EVENT DATE: 20210420
